FAERS Safety Report 6793057-4 (Version None)
Quarter: 2010Q2

REPORT INFORMATION
  Report Type: 
  Country: None (occurrence: None)
  Receive Date: 20100624
  Receipt Date: 20081114
  Transmission Date: 20101027
  Serious: No
  Sender: FDA-Public Use
  Company Number: US-PFIZER INC-2008096787

PATIENT
  Sex: Male

DRUGS (1)
  1. FELDENE [Suspect]
     Indication: ARTHRALGIA

REACTIONS (1)
  - GASTROINTESTINAL DISORDER [None]
